FAERS Safety Report 10046741 (Version 3)
Quarter: 2014Q2

REPORT INFORMATION
  Report Type: Spontaneous
  Country: US (occurrence: None)
  Receive Date: 20140326
  Receipt Date: 20140527
  Transmission Date: 20141212
  Serious: Yes (Hospitalization, Other)
  Sender: FDA-Public Use
  Company Number: 2014US002994

PATIENT
  Age: 18 Year
  Sex: Female

DRUGS (1)
  1. PONATINIB [Suspect]
     Indication: ACUTE LYMPHOCYTIC LEUKAEMIA RECURRENT
     Route: 048
     Dates: start: 20131220, end: 20131224

REACTIONS (5)
  - Pancreatitis [None]
  - Enterococcal bacteraemia [None]
  - Toxicity to various agents [None]
  - Posterior reversible encephalopathy syndrome [None]
  - Cholecystitis acute [None]
